FAERS Safety Report 4907400-1 (Version None)
Quarter: 2006Q1

REPORT INFORMATION
  Report Type: 
  Country: None (occurrence: None)
  Receive Date: 20060208
  Receipt Date: 20060208
  Transmission Date: 20060701
  Serious: No
  Sender: FDA-Public Use
  Company Number: None

PATIENT
  Age: 56 Year
  Sex: Male
  Weight: 160.1 kg

DRUGS (9)
  1. BUTETANIDE [Suspect]
     Dosage: 4 MG Q AM PO
     Route: 048
     Dates: start: 20051101, end: 20051201
  2. SPIRONOLACTONE [Suspect]
     Dosage: 50 MG BID PO
     Route: 048
     Dates: start: 20051101, end: 20051201
  3. CITALOPRAM HYDROBROMIDE [Concomitant]
  4. SPIRONOLACTONE [Concomitant]
  5. CLOTRIMAZOLE 1% TOP SOLN [Concomitant]
  6. A+D OINT [Concomitant]
  7. HUMULIN N [Concomitant]
  8. ARTIFICIAL TEARS [Concomitant]
  9. ALBUTEROL [Concomitant]

REACTIONS (1)
  - RENAL FAILURE ACUTE [None]
